FAERS Safety Report 6154122-8 (Version None)
Quarter: 2009Q2

REPORT INFORMATION
  Report Type: 
  Country: None (occurrence: None)
  Receive Date: 20090414
  Receipt Date: 20090407
  Transmission Date: 20091009
  Serious: Yes (Death)
  Sender: FDA-Public Use
  Company Number: US-BAYER-200911088BCC

PATIENT
  Age: 76 Year
  Sex: Male
  Weight: 82 kg

DRUGS (18)
  1. ASPIRIN [Suspect]
     Indication: DRUG USE FOR UNKNOWN INDICATION
     Dates: start: 20090311, end: 20090311
  2. ASPIRIN [Suspect]
  3. ANGIOMAX [Suspect]
     Indication: PERCUTANEOUS CORONARY INTERVENTION
     Route: 042
     Dates: start: 20090217, end: 20090217
  4. ANGIOMAX [Suspect]
     Route: 040
     Dates: start: 20090217, end: 20090217
  5. PLAVIX [Suspect]
     Indication: DRUG USE FOR UNKNOWN INDICATION
  6. TOPROL-XL [Concomitant]
  7. BENICAR [Concomitant]
  8. ZOCOR [Concomitant]
  9. IMDUR [Concomitant]
  10. TRICOR [Concomitant]
  11. LANOXIN [Concomitant]
  12. LOVAZA [Concomitant]
  13. NEXIUM [Concomitant]
  14. MULTI-VITAMIN [Concomitant]
  15. NITROGLYCERIN [Concomitant]
  16. ACETAMINOPHEN [Concomitant]
  17. NITROGLYCERIN [Concomitant]
     Route: 022
  18. NITROGLYCERIN [Concomitant]
     Route: 042

REACTIONS (6)
  - BLOOD PRESSURE INCREASED [None]
  - CEREBRAL HAEMORRHAGE [None]
  - DISORIENTATION [None]
  - HEADACHE [None]
  - SUBARACHNOID HAEMORRHAGE [None]
  - SUBDURAL HAEMORRHAGE [None]
